FAERS Safety Report 7493339-7 (Version None)
Quarter: 2011Q2

REPORT INFORMATION
  Report Type: 
  Country: None (occurrence: None)
  Receive Date: 20110520
  Receipt Date: 20110513
  Transmission Date: 20111010
  Serious: Yes (Other)
  Sender: FDA-Public Use
  Company Number: FR-PFIZER INC-2010056506

PATIENT
  Sex: Female
  Weight: 84 kg

DRUGS (5)
  1. ZYMA [Suspect]
  2. KETOPROFEN [Suspect]
  3. AROMASIN [Suspect]
     Dosage: UNK
  4. ZOLEDRONIC ACID [Suspect]
  5. CALCIUM CARBONATE [Suspect]

REACTIONS (3)
  - OSTEOPENIA [None]
  - ARTHRALGIA [None]
  - HYPERCHOLESTEROLAEMIA [None]
